FAERS Safety Report 21764952 (Version 1)
Quarter: 2022Q4

REPORT INFORMATION
  Report Type: Spontaneous
  Country: US (occurrence: None)
  Receive Date: 20221220
  Receipt Date: 20221220
  Transmission Date: 20230112
  Serious: No
  Sender: FDA-Public Use
  Company Number: None

PATIENT

DRUGS (4)
  1. AMPICILLIN [Suspect]
     Active Substance: AMPICILLIN
  2. UNASYN [Suspect]
     Active Substance: AMPICILLIN SODIUM\SULBACTAM SODIUM
  3. RIFAMPIN [Suspect]
     Active Substance: RIFAMPIN
  4. RIFAXIMIN [Suspect]
     Active Substance: RIFAXIMIN

REACTIONS (4)
  - Product prescribing error [None]
  - Wrong product administered [None]
  - Product name confusion [None]
  - Product name confusion [None]
